FAERS Safety Report 8147008-0 (Version None)
Quarter: 2012Q1

REPORT INFORMATION
  Report Type: 
  Country: None (occurrence: None)
  Receive Date: 20120217
  Receipt Date: 20120209
  Transmission Date: 20120608
  Serious: Yes (Hospitalization, Other)
  Sender: FDA-Public Use
  Company Number: US-ASTRAZENECA-2010SE06038

PATIENT
  Age: 44 Year
  Sex: Female
  Weight: 54.4 kg

DRUGS (6)
  1. SEROQUEL [Suspect]
     Route: 048
     Dates: start: 20080101
  2. SEROQUEL [Suspect]
     Indication: BIPOLAR DISORDER
     Route: 048
     Dates: start: 20010101, end: 20080101
  3. MORPHINE [Concomitant]
     Indication: INTERVERTEBRAL DISC DEGENERATION
  4. OXYCODONE HCL [Concomitant]
     Indication: INTERVERTEBRAL DISC DEGENERATION
  5. SEROQUEL [Suspect]
     Route: 048
     Dates: start: 20080101, end: 20080101
  6. IBUPROPHEN [Concomitant]

REACTIONS (9)
  - FEELING ABNORMAL [None]
  - DRUG INEFFECTIVE [None]
  - NO ADVERSE EVENT [None]
  - DRUG DOSE OMISSION [None]
  - MEMORY IMPAIRMENT [None]
  - THERAPEUTIC RESPONSE UNEXPECTED [None]
  - LOSS OF CONSCIOUSNESS [None]
  - INSOMNIA [None]
  - NECK PAIN [None]
